FAERS Safety Report 25934768 (Version 1)
Quarter: 2025Q4

REPORT INFORMATION
  Report Type: Spontaneous
  Country: EU (occurrence: EU)
  Receive Date: 20251017
  Receipt Date: 20251017
  Transmission Date: 20260118
  Serious: Yes (Hospitalization, Other)
  Sender: RANBAXY
  Company Number: EU-SUN PHARMACEUTICAL INDUSTRIES INC-2025R1-532241

PATIENT
  Age: 50 Year
  Sex: Male

DRUGS (1)
  1. COTRIMOXAZOLE [Suspect]
     Active Substance: SULFAMETHOXAZOLE\TRIMETHOPRIM
     Indication: Pneumocystis jirovecii pneumonia
     Dosage: 20 TO 100 MG/KG INTRAVENOUS DIVIDED INTO 4 DOSES EVERY 6 HOURS
     Route: 042

REACTIONS (2)
  - Hyperkalaemia [Recovering/Resolving]
  - Cytopenia [Recovering/Resolving]
